FAERS Safety Report 8152627-1 (Version None)
Quarter: 2012Q1

REPORT INFORMATION
  Report Type: 
  Country: None (occurrence: None)
  Receive Date: 20120221
  Receipt Date: 20120216
  Transmission Date: 20120608
  Serious: Yes (Death)
  Sender: FDA-Public Use
  Company Number: FR-JNJFOC-20120208271

PATIENT
  Sex: Female

DRUGS (6)
  1. HALDOL [Suspect]
     Indication: BIPOLAR I DISORDER
     Route: 065
     Dates: end: 20111231
  2. DUPHALAC [Concomitant]
     Indication: CONSTIPATION
     Route: 048
  3. TERCIAN [Suspect]
     Indication: BIPOLAR I DISORDER
     Route: 048
     Dates: end: 20111231
  4. RISPERDAL CONSTA [Suspect]
     Indication: PRODUCT USED FOR UNKNOWN INDICATION
     Route: 030
     Dates: end: 20111231
  5. LEPTICUR [Suspect]
     Indication: PARKINSONISM
     Route: 048
     Dates: end: 20111231
  6. TRIMEPRAZINE TARTRATE [Suspect]
     Indication: SLEEP DISORDER
     Route: 048
     Dates: end: 20111231

REACTIONS (4)
  - PYREXIA [None]
  - GASTROINTESTINAL OBSTRUCTION [None]
  - VOMITING [None]
  - CONSTIPATION [None]
